FAERS Safety Report 4511902-X (Version None)
Quarter: 2004Q4

REPORT INFORMATION
  Report Type: 
  Country: None (occurrence: None)
  Receive Date: 20041129
  Receipt Date: 20041118
  Transmission Date: 20050328
  Serious: Yes (Hospitalization)
  Sender: FDA-Public Use
  Company Number: SE-MERCK-0411SWE00037

PATIENT
  Age: 81 Year
  Sex: Male

DRUGS (9)
  1. VIOXX [Suspect]
     Indication: LOCALISED OSTEOARTHRITIS
     Route: 048
     Dates: start: 20011018, end: 20041001
  2. VERAPAMIL HYDROCHLORIDE [Concomitant]
     Route: 065
  3. ATORVASTATIN CALCIUM [Concomitant]
     Route: 065
  4. ASPIRIN [Concomitant]
     Route: 065
  5. AMILORIDE HYDROCHLORIDE [Concomitant]
     Route: 065
  6. LANSOPRAZOLE [Concomitant]
     Route: 065
  7. FUROSEMIDE SODIUM [Concomitant]
     Route: 065
  8. GLIPIZIDE [Concomitant]
     Route: 065
  9. METFORMIN [Concomitant]
     Route: 065

REACTIONS (2)
  - CEREBROVASCULAR ACCIDENT [None]
  - DIZZINESS [None]
